FAERS Safety Report 13112669 (Version 5)
Quarter: 2017Q4

REPORT INFORMATION
  Report Type: Report from Study
  Country: JP (occurrence: JP)
  Receive Date: 20170113
  Receipt Date: 20171115
  Transmission Date: 20180320
  Serious: Yes (Death, Hospitalization, Other)
  Sender: FDA-Public Use
  Company Number: JP-BRISTOL-MYERS SQUIBB COMPANY-BMS-2017-001992

PATIENT
  Age: 63 Year
  Sex: Female

DRUGS (1)
  1. NIVOLUMAB [Suspect]
     Active Substance: NIVOLUMAB
     Indication: NON-SMALL CELL LUNG CANCER
     Dosage: 3 MG/KG, UNK
     Route: 041
     Dates: start: 20160217, end: 20160506

REACTIONS (4)
  - Liver abscess [Recovered/Resolved]
  - Malignant neoplasm progression [Fatal]
  - Therapeutic aspiration [Unknown]
  - Nausea [Unknown]

NARRATIVE: CASE EVENT DATE: 2016
